FAERS Safety Report 5285306-9 (Version None)
Quarter: 2007Q2

REPORT INFORMATION
  Report Type: 
  Country: None (occurrence: None)
  Receive Date: 20070403
  Receipt Date: 20070330
  Transmission Date: 20071010
  Serious: Yes (Hospitalization)
  Sender: FDA-Public Use
  Company Number: US-ROXANE LABORATORIES, INC-2007-DE-01864GD

PATIENT

DRUGS (1)
  1. ACETAMINOPHEN W/ CODEINE TAB [Suspect]
     Indication: PROCEDURAL PAIN
     Dosage: 10 MG/KG ACETAMINOPHEN PLUS 1 MG/KG CODEINE
     Route: 048

REACTIONS (1)
  - DEHYDRATION [None]
